FAERS Safety Report 15894530 (Version 1)
Quarter: 2019Q1

REPORT INFORMATION
  Report Type: Report from Study
  Country: DE (occurrence: DE)
  Receive Date: 20190131
  Receipt Date: 20190131
  Transmission Date: 20190417
  Serious: Yes (Hospitalization)
  Sender: FDA-Public Use
  Company Number: DE-ACCORD-103538

PATIENT
  Sex: Male
  Weight: 70 kg

DRUGS (10)
  1. PACLITAXEL/PACLITAXEL LIPOSOME [Suspect]
     Active Substance: PACLITAXEL
     Indication: LUNG NEOPLASM MALIGNANT
     Dosage: DAILY DOSE: 100 MG/M2 MILLIGRAM(S)/SQ. METER EVERY WEEKS
     Route: 042
     Dates: start: 20130318, end: 20130722
  2. DEXAMETHASONE. [Concomitant]
     Active Substance: DEXAMETHASONE
     Indication: LUNG CANCER METASTATIC
     Dosage: DAY 1, DAY 8, REPETITION DAY 22
     Route: 042
  3. GRANISETRON/GRANISETRON HYDROCHLORIDE [Concomitant]
     Indication: PREMEDICATION
     Dosage: DAY 1, DAY 8, REPETITION DAY 22
     Route: 042
  4. CARBOPLATIN. [Suspect]
     Active Substance: CARBOPLATIN
     Indication: LUNG NEOPLASM MALIGNANT
     Dosage: DAILY DOSE: 300 MG/M2 MILLIGRAM(S)/SQ. METER EVERY 3 WEEKS
     Route: 042
     Dates: start: 20130318, end: 20130715
  5. AVASTIN [Suspect]
     Active Substance: BEVACIZUMAB
     Indication: LUNG ADENOCARCINOMA
     Dosage: DAILY DOSE: 15 MG/KG MILLIGRAM(S)/KILOGRAM EVERY 3 WEEKS
     Route: 042
     Dates: start: 20130225, end: 20130715
  6. TAVEGIL [Concomitant]
     Active Substance: CLEMASTINE FUMARATE
     Indication: PREMEDICATION
     Route: 042
  7. CISPLATIN. [Suspect]
     Active Substance: CISPLATIN
     Indication: LUNG NEOPLASM MALIGNANT
     Dosage: ON DAY 1 AND 8 OF EACH 3 WEEK CYCLE.
     Route: 042
     Dates: start: 20130121, end: 20130304
  8. VERGENTAN [Concomitant]
     Active Substance: ALIZAPRIDE HYDROCHLORIDE
     Indication: PREMEDICATION
     Dosage: DAY 1, DAY 8, REPETITION DAY 22
     Route: 042
  9. RANITIC [Concomitant]
     Active Substance: RANITIDINE HYDROCHLORIDE
     Dosage: GIVEN ON DAY 1, 8 AND 15 OF CYCLE
     Route: 042
  10. PEMETREXED. [Suspect]
     Active Substance: PEMETREXED
     Indication: LUNG NEOPLASM MALIGNANT
     Dosage: DAILY DOSE: 500 MG/M2 MILLIGRAM(S)/SQ. METER EVERY 3 WEEKS
     Route: 042
     Dates: start: 20130121, end: 20130218

REACTIONS (4)
  - General physical health deterioration [Not Recovered/Not Resolved]
  - Leukopenia [Recovering/Resolving]
  - Tinnitus [Unknown]
  - Hypoacusis [Unknown]

NARRATIVE: CASE EVENT DATE: 20130225
